FAERS Safety Report 24703042 (Version 7)
Quarter: 2025Q1

REPORT INFORMATION
  Report Type: Spontaneous
  Country: US (occurrence: US)
  Receive Date: 20241205
  Receipt Date: 20250326
  Transmission Date: 20250409
  Serious: No
  Sender: PFIZER
  Company Number: US-PFIZER INC-PV202400158375

PATIENT
  Age: 70 Year
  Sex: Female

DRUGS (5)
  1. TUKYSA [Suspect]
     Active Substance: TUCATINIB
     Dosage: 150 MG, TWO TABLETS TWICE A DAY
     Route: 048
     Dates: start: 202411
  2. ZOMETA [Suspect]
     Active Substance: ZOLEDRONIC ACID
  3. LETROZOLE [Suspect]
     Active Substance: LETROZOLE
  4. PERTUZUMAB [Suspect]
     Active Substance: PERTUZUMAB
  5. CAPECITABINE [Suspect]
     Active Substance: CAPECITABINE

REACTIONS (4)
  - Diarrhoea [Recovering/Resolving]
  - Off label use [Unknown]
  - Off label use [Unknown]
  - Product use issue [Unknown]

NARRATIVE: CASE EVENT DATE: 20241101
